FAERS Safety Report 8020899-X (Version None)
Quarter: 2011Q4

REPORT INFORMATION
  Report Type: 
  Country: None (occurrence: None)
  Receive Date: 20111229
  Receipt Date: 20111229
  Transmission Date: 20120403
  Serious: No
  Sender: FDA-Public Use
  Company Number: None

PATIENT
  Age: 79 Year
  Sex: Male
  Weight: 73.6 kg

DRUGS (1)
  1. PHYTONADIONE [Suspect]
     Dosage: ONCE IV
     Route: 042
     Dates: start: 20111016, end: 20111016

REACTIONS (3)
  - RENAL IMPAIRMENT [None]
  - ANAPHYLACTIC REACTION [None]
  - HEPATIC FAILURE [None]
